FAERS Safety Report 18993267 (Version 1)
Quarter: 2021Q1

REPORT INFORMATION
  Report Type: Spontaneous
  Country: US (occurrence: US)
  Receive Date: 20210310
  Receipt Date: 20210310
  Transmission Date: 20210420
  Serious: Yes (Hospitalization, Other)
  Sender: FDA-Public Use
  Company Number: US-UPSHER-SMITH LABORATORIES, LLC-2021USL00259

PATIENT
  Sex: Male

DRUGS (4)
  1. UNSPECIFIED MEDICATIONS [Suspect]
     Active Substance: UNSPECIFIED INGREDIENT
     Indication: PULMONARY TOXICITY
  2. UNSPECIFIED MEDICATIONS [Suspect]
     Active Substance: UNSPECIFIED INGREDIENT
     Indication: BLINDNESS
  3. AMIODARONE HYDROCHLORIDE. [Suspect]
     Active Substance: AMIODARONE HYDROCHLORIDE
     Indication: ATRIAL FIBRILLATION
     Dosage: UNK
     Route: 048
     Dates: start: 201406
  4. UNSPECIFIED MEDICATIONS [Suspect]
     Active Substance: UNSPECIFIED INGREDIENT
     Indication: INTERSTITIAL LUNG DISEASE

REACTIONS (6)
  - Interstitial lung disease [Unknown]
  - Pulmonary toxicity [Unknown]
  - Off label use [Unknown]
  - Unevaluable event [Unknown]
  - Syncope [Unknown]
  - Blindness [Unknown]

NARRATIVE: CASE EVENT DATE: 201406
